FAERS Safety Report 7712464-6 (Version None)
Quarter: 2011Q3

REPORT INFORMATION
  Report Type: 
  Country: None (occurrence: None)
  Receive Date: 20110826
  Receipt Date: 20110826
  Transmission Date: 20111222
  Serious: No
  Sender: FDA-Public Use
  Company Number: None

PATIENT
  Age: 58 Year
  Sex: Female
  Weight: 104.32 kg

DRUGS (1)
  1. VALPROIC ACID [Suspect]
     Indication: BIPOLAR II DISORDER
     Dosage: 750
     Route: 048
     Dates: start: 20101014, end: 20110613

REACTIONS (2)
  - ALOPECIA [None]
  - WEIGHT INCREASED [None]
